FAERS Safety Report 19259916 (Version 1)
Quarter: 2021Q2

REPORT INFORMATION
  Report Type: Spontaneous
  Country: AU (occurrence: AU)
  Receive Date: 20210514
  Receipt Date: 20210514
  Transmission Date: 20210717
  Serious: Yes (Death, Other)
  Sender: FDA-Public Use
  Company Number: AU-PFIZER INC-2021504559

PATIENT
  Age: 22 Year
  Sex: Male

DRUGS (10)
  1. PAXAM [CLONAZEPAM] [Suspect]
     Active Substance: CLONAZEPAM
  2. ALLERSOOTHE [Suspect]
     Active Substance: PROMETHAZINE HYDROCHLORIDE
     Dosage: UNK
     Dates: start: 20190810
  3. LYRICA [Suspect]
     Active Substance: PREGABALIN
  4. AMITRIPTYLINE [Suspect]
     Active Substance: AMITRIPTYLINE
  5. MERSYNDOL WITH CODEINE [Suspect]
     Active Substance: ACETAMINOPHEN\CODEINE PHOSPHATE\DOXYLAMINE SUCCINATE
  6. CATAPRES?TTS [Suspect]
     Active Substance: CLONIDINE
  7. ENDONE [Suspect]
     Active Substance: OXYCODONE HYDROCHLORIDE
     Dosage: UNK
     Dates: start: 20190815
  8. APO?QUETIAPINE [Suspect]
     Active Substance: QUETIAPINE
  9. KALMA (ALPRAZOLAM) [Suspect]
     Active Substance: ALPRAZOLAM
     Dosage: UNK
     Dates: start: 20190817
  10. VALDOXAN [Suspect]
     Active Substance: AGOMELATINE

REACTIONS (11)
  - Pain [Unknown]
  - Back injury [Unknown]
  - Panic attack [Unknown]
  - Condition aggravated [Unknown]
  - Somnolence [Unknown]
  - Drug dependence [Unknown]
  - Confusional state [Unknown]
  - Sedation [Unknown]
  - Dysarthria [Unknown]
  - Gait disturbance [Unknown]
  - Toxicity to various agents [Fatal]

NARRATIVE: CASE EVENT DATE: 20190815
